FAERS Safety Report 22324110 (Version 1)
Quarter: 2023Q2

REPORT INFORMATION
  Report Type: Spontaneous
  Country: US (occurrence: None)
  Receive Date: 20230512
  Receipt Date: 20230512
  Transmission Date: 20230722
  Serious: Yes (Other)
  Sender: FDA-Public Use
  Company Number: None

PATIENT
  Age: 36 Year
  Sex: Female
  Weight: 49.95 kg

DRUGS (3)
  1. XULANE [Suspect]
     Active Substance: ETHINYL ESTRADIOL\NORELGESTROMIN
     Indication: Hypersensitivity
     Dates: start: 20230423, end: 20230506
  2. Flonaise [Concomitant]
  3. Adult Centrum [Concomitant]

REACTIONS (4)
  - Pruritus [None]
  - Burning sensation [None]
  - Urticaria [None]
  - Pustule [None]

NARRATIVE: CASE EVENT DATE: 20230501
